FAERS Safety Report 6502746-8 (Version None)
Quarter: 2009Q4

REPORT INFORMATION
  Report Type: 
  Country: None (occurrence: None)
  Receive Date: 20091217
  Receipt Date: 20091216
  Transmission Date: 20100525
  Serious: Yes (Disabling, Other)
  Sender: FDA-Public Use
  Company Number: US-NAPPMUNDI-USA-2009-0041276

PATIENT
  Sex: Male

DRUGS (3)
  1. OXYCONTIN [Suspect]
     Indication: DRUG ABUSE
  2. MORPHINE SULFATE (SIMILAR TO NDA 19-516) [Suspect]
     Indication: DRUG ABUSE
  3. COCAINE [Suspect]
     Indication: DRUG ABUSE

REACTIONS (2)
  - ROAD TRAFFIC ACCIDENT [None]
  - SUBSTANCE ABUSE [None]
